FAERS Safety Report 6704268-8 (Version None)
Quarter: 2010Q2

REPORT INFORMATION
  Report Type: 
  Country: None (occurrence: None)
  Receive Date: 20100430
  Receipt Date: 20100420
  Transmission Date: 20101027
  Serious: Yes (Other)
  Sender: FDA-Public Use
  Company Number: CA-JNJFOC-20100406167

PATIENT
  Sex: Male
  Weight: 81.65 kg

DRUGS (5)
  1. REMICADE [Suspect]
     Indication: CROHN'S DISEASE
     Route: 042
  2. REMICADE [Suspect]
     Route: 042
  3. REMICADE [Suspect]
     Route: 042
  4. CORTISONE [Concomitant]
     Indication: PSORIASIS
     Route: 061
  5. FLU VACCINE [Concomitant]
     Indication: IMMUNISATION

REACTIONS (3)
  - ALOPECIA [None]
  - MUSCLE TWITCHING [None]
  - PUSTULAR PSORIASIS [None]
